FAERS Safety Report 15478384 (Version 1)
Quarter: 2018Q4

REPORT INFORMATION
  Report Type: Spontaneous
  Country: US (occurrence: US)
  Receive Date: 20181002
  Receipt Date: 20181002
  Transmission Date: 20190205
  Serious: Yes (Other)
  Sender: FDA-Public Use
  Company Number: None

PATIENT
  Age: 56 Year
  Sex: Female
  Weight: 79.65 kg

DRUGS (11)
  1. SINGULAIR [Concomitant]
     Active Substance: MONTELUKAST SODIUM
  2. AMBIEN [Concomitant]
     Active Substance: ZOLPIDEM TARTRATE
  3. TRULICITY [Suspect]
     Active Substance: DULAGLUTIDE
     Indication: DIABETES MELLITUS
     Dosage: ?          QUANTITY:1 INJECTION(S);OTHER FREQUENCY:WEEKLY;OTHER ROUTE:SUBCUTANEOUS INJECTION?
     Route: 058
     Dates: start: 20180916
  4. XANAX [Concomitant]
     Active Substance: ALPRAZOLAM
  5. CYMBALTA [Concomitant]
     Active Substance: DULOXETINE HYDROCHLORIDE
  6. HUMIRA [Concomitant]
     Active Substance: ADALIMUMAB
  7. MELOXICAM. [Concomitant]
     Active Substance: MELOXICAM
  8. PROTONIX [Concomitant]
     Active Substance: PANTOPRAZOLE SODIUM
  9. SILENOR [Concomitant]
     Active Substance: DOXEPIN HYDROCHLORIDE
  10. MATZIM [Concomitant]
     Active Substance: DILTIAZEM
  11. CRESTOR [Concomitant]
     Active Substance: ROSUVASTATIN CALCIUM

REACTIONS (3)
  - Diarrhoea [None]
  - Gastrooesophageal reflux disease [None]
  - Eructation [None]

NARRATIVE: CASE EVENT DATE: 20181001
